FAERS Safety Report 9705012 (Version 1)
Quarter: 2013Q4

REPORT INFORMATION
  Report Type: Spontaneous
  Country: US (occurrence: US)
  Receive Date: 20131122
  Receipt Date: 20131122
  Transmission Date: 20140711
  Serious: No
  Sender: FDA-Public Use
  Company Number: US-ABBVIE-13P-163-1136900-00

PATIENT
  Age: 61 Year
  Sex: Male
  Weight: 102.15 kg

DRUGS (6)
  1. ANDROGEL [Suspect]
     Indication: BLOOD TESTOSTERONE DECREASED
     Dosage: 2 PUMPS DAY
     Dates: start: 201301, end: 201308
  2. ANDROGEL [Suspect]
     Indication: BLOOD TESTOSTERONE DECREASED
     Dates: end: 201301
  3. ATENOLOL [Concomitant]
     Indication: HYPERTENSION
  4. ATIVAN [Concomitant]
     Indication: ANXIETY
  5. KLONOPIN [Concomitant]
     Indication: PANIC DISORDER
  6. UNKNOWN EYE DROPS [Concomitant]
     Indication: GLAUCOMA

REACTIONS (4)
  - Blood testosterone increased [Not Recovered/Not Resolved]
  - Depression [Unknown]
  - Headache [Unknown]
  - Asthenia [Unknown]
